FAERS Safety Report 8469429-9 (Version None)
Quarter: 2012Q2

REPORT INFORMATION
  Report Type: 
  Country: None (occurrence: None)
  Receive Date: 20120621
  Receipt Date: 20120621
  Transmission Date: 20120825
  Serious: No
  Sender: FDA-Public Use
  Company Number: None

PATIENT
  Sex: Female
  Weight: 69.4003 kg

DRUGS (2)
  1. ZETIA [Suspect]
     Indication: BLOOD CHOLESTEROL INCREASED
     Dosage: 10 MG 1 DAILY 1/2 PILL - 5 MG
     Dates: start: 20120601, end: 20120610
  2. ZETIA [Suspect]
     Indication: BLOOD TRIGLYCERIDES INCREASED
     Dosage: 10 MG 1 DAILY 1/2 PILL - 5 MG
     Dates: start: 20120601, end: 20120610

REACTIONS (4)
  - PAIN IN EXTREMITY [None]
  - FEELING HOT [None]
  - PAIN [None]
  - URTICARIA [None]
